FAERS Safety Report 6903353-5 (Version None)
Quarter: 2010Q3

REPORT INFORMATION
  Report Type: 
  Country: None (occurrence: None)
  Receive Date: 20100803
  Receipt Date: 20080925
  Transmission Date: 20110219
  Serious: Yes (Other)
  Sender: FDA-Public Use
  Company Number: US-PFIZER INC-2008075102

PATIENT
  Age: 68 Year
  Sex: Male
  Weight: 86.2 kg

DRUGS (2)
  1. LYRICA [Suspect]
     Indication: RADICULAR PAIN
     Route: 048
  2. NORCO [Concomitant]

REACTIONS (1)
  - SOMNOLENCE [None]
